FAERS Safety Report 5635586-2 (Version None)
Quarter: 2008Q1

REPORT INFORMATION
  Report Type: 
  Country: None (occurrence: None)
  Receive Date: 20080222
  Receipt Date: 20080210
  Transmission Date: 20080703
  Serious: Yes (Other)
  Sender: FDA-Public Use
  Company Number: US-PFIZER INC-2008015391

PATIENT
  Sex: Female

DRUGS (5)
  1. CHANTIX [Suspect]
     Indication: SMOKING CESSATION THERAPY
     Dosage: TEXT:EVERY DAY
  2. CILOSTAZOL [Concomitant]
     Indication: PERIPHERAL VASCULAR DISORDER
  3. MULTI-VITAMINS [Concomitant]
     Indication: NEPHROLITHIASIS
  4. LISINOPRIL [Concomitant]
  5. SIMVASTATIN [Concomitant]

REACTIONS (1)
  - CERVICAL SPINAL STENOSIS [None]
